FAERS Safety Report 8312831-6 (Version None)
Quarter: 2012Q2

REPORT INFORMATION
  Report Type: 
  Country: None (occurrence: None)
  Receive Date: 20120426
  Receipt Date: 20120423
  Transmission Date: 20120825
  Serious: No
  Sender: FDA-Public Use
  Company Number: US-PFIZER INC-2012100473

PATIENT

DRUGS (3)
  1. TYLENOL (CAPLET) [Concomitant]
     Dosage: UNK
  2. TRAMADOL [Concomitant]
     Dosage: UNK
  3. FLECTOR [Suspect]
     Dosage: UNK

REACTIONS (1)
  - DRUG INEFFECTIVE [None]
